FAERS Safety Report 9516011 (Version 3)
Quarter: 2013Q4

REPORT INFORMATION
  Report Type: Report from Study
  Country: JP (occurrence: JP)
  Receive Date: 20130911
  Receipt Date: 20131227
  Transmission Date: 20140711
  Serious: Yes (Disabling)
  Sender: FDA-Public Use
  Company Number: JP-JNJFOC-20130902589

PATIENT
  Age: 79 Year
  Sex: Female
  Weight: 65 kg

DRUGS (27)
  1. ONEDURO [Suspect]
     Indication: CANCER PAIN
     Route: 062
     Dates: start: 20130417, end: 20130430
  2. ONEDURO [Suspect]
     Indication: CANCER PAIN
     Route: 062
     Dates: start: 20130405, end: 20130416
  3. ONEDURO [Suspect]
     Indication: CANCER PAIN
     Route: 062
     Dates: start: 20130401, end: 20130404
  4. FENTANYL CITRATE [Suspect]
     Indication: GENERAL ANAESTHESIA
     Route: 008
     Dates: start: 20130427, end: 20130427
  5. FENTANYL CITRATE [Suspect]
     Indication: CANCER PAIN
     Route: 008
     Dates: start: 20130427, end: 20130427
  6. OXINORM [Concomitant]
     Indication: CANCER PAIN
     Route: 048
     Dates: start: 20130331, end: 20130331
  7. OXINORM [Concomitant]
     Indication: CANCER PAIN
     Route: 048
     Dates: start: 20130402, end: 20130402
  8. OXINORM [Concomitant]
     Indication: CANCER PAIN
     Route: 048
     Dates: start: 20130403, end: 20130403
  9. OXINORM [Concomitant]
     Indication: CANCER PAIN
     Route: 048
     Dates: start: 20130405, end: 20130405
  10. OXINORM [Concomitant]
     Indication: CANCER PAIN
     Route: 048
     Dates: start: 20130406, end: 20130406
  11. OXINORM [Concomitant]
     Indication: CANCER PAIN
     Route: 048
     Dates: start: 20130407, end: 20130407
  12. OXINORM [Concomitant]
     Indication: CANCER PAIN
     Route: 048
     Dates: start: 20130408, end: 20130408
  13. OXINORM [Concomitant]
     Indication: CANCER PAIN
     Route: 048
     Dates: start: 20130409, end: 20130412
  14. OXINORM [Concomitant]
     Indication: CANCER PAIN
     Route: 048
     Dates: start: 20130404, end: 20130404
  15. CELECOX [Concomitant]
     Indication: CANCER PAIN
     Route: 048
  16. NOVAMIN [Concomitant]
     Indication: NAUSEA
     Route: 048
  17. MAGLAX [Concomitant]
     Indication: CONSTIPATION
     Route: 048
  18. SENNOSIDE [Concomitant]
     Indication: CONSTIPATION
     Route: 048
  19. NEXIUM [Concomitant]
     Indication: GASTRIC ULCER
     Route: 048
  20. ANAPEINE [Concomitant]
     Indication: CANCER PAIN
     Route: 008
     Dates: start: 20130224, end: 20130427
  21. ANAPEINE [Concomitant]
     Indication: CANCER PAIN
     Route: 008
     Dates: start: 20130424, end: 20130427
  22. OXYCONTIN [Concomitant]
     Indication: DELIRIUM
     Route: 048
     Dates: start: 20130428, end: 20130430
  23. OXYCONTIN [Concomitant]
     Indication: CANCER PAIN
     Route: 048
     Dates: start: 20130428, end: 20130430
  24. DIPRIVAN [Concomitant]
     Indication: CANCER PAIN
     Route: 065
     Dates: start: 20130424, end: 20130424
  25. DOBUTAMINE HYDROCHLORIDE [Concomitant]
     Indication: CANCER PAIN
     Route: 065
     Dates: start: 20130424, end: 20130424
  26. ULTIVA [Concomitant]
     Indication: CANCER PAIN
     Route: 042
     Dates: start: 20130424, end: 20130424
  27. CEFMETAZOLE SODIUM [Concomitant]
     Indication: CANCER PAIN
     Route: 065
     Dates: start: 20130424, end: 20130424

REACTIONS (3)
  - Delirium [Recovering/Resolving]
  - Drug intolerance [Unknown]
  - Incorrect route of drug administration [Unknown]
